FAERS Safety Report 6340509-7 (Version None)
Quarter: 2009Q3

REPORT INFORMATION
  Report Type: 
  Country: None (occurrence: None)
  Receive Date: 20090904
  Receipt Date: 20090825
  Transmission Date: 20100115
  Serious: Yes (Other)
  Sender: FDA-Public Use
  Company Number: US-JNJFOC-20090808487

PATIENT
  Age: 38 Year
  Sex: Male

DRUGS (3)
  1. INTELENCE [Suspect]
     Indication: HIV INFECTION
     Dates: start: 20090724
  2. TRUVADA [Concomitant]
     Indication: HIV INFECTION
     Dates: start: 20090724
  3. ISENTRESS [Concomitant]
     Indication: HIV INFECTION
     Dates: start: 20090501

REACTIONS (1)
  - MYALGIA [None]
